FAERS Safety Report 5322756-6 (Version None)
Quarter: 2007Q2

REPORT INFORMATION
  Report Type: 
  Country: None (occurrence: None)
  Receive Date: 20070511
  Receipt Date: 20070503
  Transmission Date: 20071010
  Serious: Yes (Hospitalization, Other)
  Sender: FDA-Public Use
  Company Number: US-PFIZER INC-2006129897

PATIENT
  Sex: Male
  Weight: 72.6 kg

DRUGS (2)
  1. CELEBREX [Suspect]
     Indication: INFLAMMATION
     Dates: start: 20050504, end: 20050714
  2. CELEBREX [Suspect]
     Indication: BACK PAIN

REACTIONS (4)
  - BACK PAIN [None]
  - BLINDNESS [None]
  - HYPERTENSION [None]
  - MYOCARDIAL INFARCTION [None]
